FAERS Safety Report 5206467-3 (Version None)
Quarter: 2007Q1

REPORT INFORMATION
  Report Type: 
  Country: None (occurrence: None)
  Receive Date: 20070111
  Receipt Date: 20070102
  Transmission Date: 20070707
  Serious: Yes (Other)
  Sender: FDA-Public Use
  Company Number: US-PFIZER INC-2007002255

PATIENT
  Sex: Male

DRUGS (1)
  1. NEURONTIN [Suspect]
     Dosage: DAILY DOSE:100MG

REACTIONS (17)
  - AMNESIA [None]
  - ANTISOCIAL BEHAVIOUR [None]
  - CHRONIC LYMPHOCYTIC LEUKAEMIA [None]
  - DEPRESSED LEVEL OF CONSCIOUSNESS [None]
  - DEPRESSION [None]
  - DISTURBANCE IN ATTENTION [None]
  - DYSPHONIA [None]
  - GINGIVAL CYST [None]
  - GLUCOSE TOLERANCE IMPAIRED [None]
  - HYPERTENSION [None]
  - PANIC ATTACK [None]
  - PARANOIA [None]
  - PSORIASIS [None]
  - SEXUAL DYSFUNCTION [None]
  - TREMOR [None]
  - VISION BLURRED [None]
  - WEIGHT INCREASED [None]
